FAERS Safety Report 5450104-X (Version None)
Quarter: 2007Q3

REPORT INFORMATION
  Report Type: 
  Country: None (occurrence: None)
  Receive Date: 20070912
  Receipt Date: 20070905
  Transmission Date: 20080115
  Serious: Yes (Other)
  Sender: FDA-Public Use
  Company Number: US-ROCHE-515425

PATIENT
  Age: 72 Year
  Sex: Female

DRUGS (14)
  1. BONIVA [Suspect]
     Indication: OSTEOPOROSIS
     Route: 065
     Dates: start: 20070401
  2. COUMADIN [Concomitant]
     Indication: DEEP VEIN THROMBOSIS
     Dosage: DOSING AMOUNT AND FREQUENCY REPORTED AS: 7.5 MG ON WEDNESDAY AND SUNDAY
  3. COUMADIN [Concomitant]
  4. SLOW-K [Concomitant]
  5. PAXIL [Concomitant]
  6. LISINOPRIL [Concomitant]
  7. ZOCOR [Concomitant]
  8. 1 CONCOMITANT DRUG [Concomitant]
     Dosage: REPORTED AS: HYDROTHYAZIDE
  9. LEVOXYL [Concomitant]
  10. ALBUTEROL [Concomitant]
  11. 1 CONCOMITANT DRUG [Concomitant]
     Dosage: REPORTED AS: ASTHMACORT
  12. VITAMIN D [Concomitant]
  13. TUMS [Concomitant]
  14. VITAMINS NOS [Concomitant]
     Dosage: REPORTED AS: MULTIPLE VITAMINS

REACTIONS (7)
  - CONTUSION [None]
  - FEELING ABNORMAL [None]
  - HEADACHE [None]
  - INTERNATIONAL NORMALISED RATIO INCREASED [None]
  - MEMORY IMPAIRMENT [None]
  - MIGRAINE [None]
  - PAIN IN EXTREMITY [None]
